FAERS Safety Report 8133934-5 (Version None)
Quarter: 2012Q1

REPORT INFORMATION
  Report Type: 
  Country: None (occurrence: None)
  Receive Date: 20120213
  Receipt Date: 20120203
  Transmission Date: 20120608
  Serious: Yes (Hospitalization)
  Sender: FDA-Public Use
  Company Number: BR-ASTRAZENECA-2012SE07908

PATIENT
  Age: 70 Year
  Sex: Male
  Weight: 76 kg

DRUGS (4)
  1. ZETIA [Concomitant]
     Indication: BLOOD CHOLESTEROL INCREASED
     Route: 048
     Dates: start: 20110701
  2. ONGLYZA [Suspect]
     Indication: DIABETES MELLITUS
     Route: 048
     Dates: start: 20100101
  3. CRESTOR [Suspect]
     Indication: BLOOD CHOLESTEROL INCREASED
     Route: 048
  4. DIAMICRON [Concomitant]
     Indication: DIABETES MELLITUS
     Route: 048
     Dates: start: 20110701

REACTIONS (1)
  - CORONARY ARTERY OCCLUSION [None]
